FAERS Safety Report 4371311-3 (Version None)
Quarter: 2004Q2

REPORT INFORMATION
  Report Type: 
  Country: None (occurrence: None)
  Receive Date: 20040603
  Receipt Date: 20040524
  Transmission Date: 20050107
  Serious: Yes (Hospitalization)
  Sender: FDA-Public Use
  Company Number: US-JNJFOC-20040505716

PATIENT
  Age: 81 Year
  Sex: Male

DRUGS (9)
  1. ULTRAM [Suspect]
     Indication: BACK PAIN
     Dosage: 100 MG, 3 IN 1 DAY, ORAL
     Route: 048
  2. CENTROID (CENTRUM) [Concomitant]
  3. PREVACID [Concomitant]
  4. FLORINEF [Concomitant]
  5. PROAMITINE (MIDODRINE HYDROCHLORIDE) [Concomitant]
  6. FLOMAX [Concomitant]
  7. AEROCYT (ALL OTHER THERAPEUTIC PRODUCTS) [Concomitant]
  8. ALBUTEROL [Concomitant]
  9. LASIX [Concomitant]

REACTIONS (1)
  - PULMONARY OEDEMA [None]
